FAERS Safety Report 5692133-7 (Version None)
Quarter: 2008Q2

REPORT INFORMATION
  Report Type: 
  Country: None (occurrence: None)
  Receive Date: 20080402
  Receipt Date: 20080318
  Transmission Date: 20081010
  Serious: Yes (Other)
  Sender: FDA-Public Use
  Company Number: DE-ROCHE-542277

PATIENT
  Age: 76 Year
  Sex: Female

DRUGS (4)
  1. BONIVA [Suspect]
     Indication: OSTEOPOROSIS
     Route: 042
     Dates: start: 20080116
  2. BONIVA [Suspect]
     Dosage: DRUG REPORTED AS: BONVIVA 150 MG FILMTABLETTEN
     Route: 065
  3. L-THYROXIN [Concomitant]
  4. ATACAND [Concomitant]

REACTIONS (1)
  - HYPERHIDROSIS [None]
